FAERS Safety Report 21532738 (Version 1)
Quarter: 2022Q4

REPORT INFORMATION
  Report Type: Spontaneous
  Country: JP (occurrence: JP)
  Receive Date: 20221101
  Receipt Date: 20221101
  Transmission Date: 20230113
  Serious: Yes (Hospitalization, Other)
  Sender: FDA-Public Use
  Company Number: JP-SUN PHARMACEUTICAL INDUSTRIES LTD-2022RR-360504

PATIENT
  Age: 67 Year
  Sex: Female

DRUGS (10)
  1. GEMCITABINE [Suspect]
     Active Substance: GEMCITABINE
     Indication: Pancreatic carcinoma
     Dosage: UNK
     Route: 065
  2. ERLOTINIB [Suspect]
     Active Substance: ERLOTINIB
     Indication: Pancreatic carcinoma
     Dosage: UNK
     Route: 065
     Dates: start: 202009
  3. OXALIPLATIN [Suspect]
     Active Substance: OXALIPLATIN
     Indication: Pancreatic carcinoma
     Dosage: FOLFIRINOX THERAPY
     Route: 065
     Dates: start: 201912
  4. IRINOTECAN [Suspect]
     Active Substance: IRINOTECAN
     Indication: Pancreatic carcinoma
     Dosage: FOLFIRINOX THERAPY
     Route: 065
     Dates: start: 201912
  5. LEUCOVORIN CALCIUM [Suspect]
     Active Substance: LEUCOVORIN CALCIUM
     Indication: Pancreatic carcinoma
     Dosage: FOLFIRINOX THERAPY
     Route: 065
     Dates: start: 201912
  6. PACLITAXEL [Suspect]
     Active Substance: PACLITAXEL
     Indication: Pancreatic carcinoma
     Dosage: UNK
     Route: 065
  7. FLUOROURACIL [Suspect]
     Active Substance: FLUOROURACIL
     Indication: Pancreatic carcinoma
     Dosage: FOLFIRINOX THERAPY
     Route: 065
     Dates: start: 201912
  8. TS-1 [Suspect]
     Active Substance: GIMERACIL\OTERACIL\TEGAFUR
     Indication: Pancreatic carcinoma
     Dosage: UNK
     Route: 065
     Dates: start: 202001
  9. RIVAROXABAN [Concomitant]
     Active Substance: RIVAROXABAN
     Indication: Pulmonary embolism
     Dosage: UNK
     Route: 065
     Dates: start: 202003
  10. RIVAROXABAN [Concomitant]
     Active Substance: RIVAROXABAN
     Indication: Deep vein thrombosis

REACTIONS (2)
  - Disease progression [Unknown]
  - Metastases to stomach [Unknown]
